FAERS Safety Report 10138785 (Version 3)
Quarter: 2014Q2

REPORT INFORMATION
  Report Type: Spontaneous
  Country: JP (occurrence: JP)
  Receive Date: 20140429
  Receipt Date: 20140603
  Transmission Date: 20141212
  Serious: Yes (Other)
  Sender: FDA-Public Use
  Company Number: PHHY2014JP050615

PATIENT
  Age: 72 Year
  Sex: Male

DRUGS (2)
  1. EVEROLIMUS [Suspect]
     Indication: RENAL CELL CARCINOMA
     Dosage: 10 MG
     Route: 048
     Dates: start: 20130530, end: 20130903
  2. AXITINIB [Suspect]
     Route: 048
     Dates: start: 20121124, end: 20130502

REACTIONS (2)
  - Renal disorder [Recovered/Resolved]
  - Oedema [Recovered/Resolved]
